FAERS Safety Report 11107821 (Version 1)
Quarter: 2015Q2

REPORT INFORMATION
  Report Type: Spontaneous
  Country: US (occurrence: US)
  Receive Date: 20150512
  Receipt Date: 20150512
  Transmission Date: 20150821
  Serious: No
  Sender: FDA-Public Use
  Company Number: US-BAYER-2015-199582

PATIENT
  Age: 62 Year
  Sex: Female

DRUGS (2)
  1. ALEVE PM [Suspect]
     Active Substance: DIPHENHYDRAMINE HYDROCHLORIDE\NAPROXEN SODIUM
     Dosage: UNK
  2. ALEVE [Suspect]
     Active Substance: NAPROXEN SODIUM
     Indication: ANALGESIC THERAPY
     Dosage: 1 DF, QD
     Route: 048
     Dates: start: 2000

REACTIONS (4)
  - Insomnia [Unknown]
  - Headache [Recovered/Resolved]
  - Abdominal pain [Recovered/Resolved]
  - Abdominal distension [Unknown]

NARRATIVE: CASE EVENT DATE: 20150427
